FAERS Safety Report 5282772-X (Version None)
Quarter: 2007Q2

REPORT INFORMATION
  Report Type: 
  Country: None (occurrence: None)
  Receive Date: 20070402
  Receipt Date: 20070319
  Transmission Date: 20071010
  Serious: Yes (Death, Hospitalization)
  Sender: FDA-Public Use
  Company Number: CA-JNJFOC-20060401228

PATIENT
  Sex: Male
  Weight: 72 kg

DRUGS (3)
  1. REMICADE [Suspect]
     Dosage: 16 INFUSIONS
     Route: 042
  2. REMICADE [Suspect]
     Route: 042
  3. REMICADE [Suspect]
     Indication: RHEUMATOID ARTHRITIS
     Dosage: 17 INFUSION
     Route: 042

REACTIONS (4)
  - DEATH [None]
  - HEPATIC ENZYME INCREASED [None]
  - PNEUMONIA [None]
  - TUBERCULOSIS [None]
